FAERS Safety Report 5567917-6 (Version None)
Quarter: 2007Q4

REPORT INFORMATION
  Report Type: 
  Country: None (occurrence: None)
  Receive Date: 20071218
  Receipt Date: 20071202
  Transmission Date: 20080405
  Serious: Yes (Hospitalization)
  Sender: FDA-Public Use
  Company Number: 2007SP004011

PATIENT
  Age: 56 Year
  Sex: Male

DRUGS (12)
  1. XOPENEX [Suspect]
     Indication: CHRONIC OBSTRUCTIVE PULMONARY DISEASE
     Dosage: 1.25 MG;PRN;INHALATION
     Route: 055
     Dates: start: 20050101, end: 20071202
  2. ALBUTEROL SULFATE W/IPRATROPIUM BROMIDE [Concomitant]
  3. ASPIRIN [Concomitant]
  4. NITROGLYCERIN [Concomitant]
  5. NITROGLYCERIN [Concomitant]
  6. CRESTOR [Concomitant]
  7. LABETALOL HCL [Concomitant]
  8. ZETIA [Concomitant]
  9. PLAVIX [Concomitant]
  10. DILTIAZEM [Concomitant]
  11. AVALIDE [Concomitant]
  12. PANTOPRAZOLE SODIUM [Concomitant]

REACTIONS (3)
  - COMPUTERISED TOMOGRAM THORAX ABNORMAL [None]
  - HAEMOPTYSIS [None]
  - SCAR [None]
